FAERS Safety Report 6128788-2 (Version None)
Quarter: 2009Q1

REPORT INFORMATION
  Report Type: 
  Country: None (occurrence: None)
  Receive Date: 20090320
  Receipt Date: 20090310
  Transmission Date: 20090719
  Serious: Yes (Life-Threatening)
  Sender: FDA-Public Use
  Company Number: 005852

PATIENT
  Age: 83 Year
  Sex: Female

DRUGS (5)
  1. PLETAL [Suspect]
     Indication: ARTERIOSCLEROSIS OBLITERANS
     Dosage: 50 MG, BID  , ORAL
     Route: 048
     Dates: start: 20080515
  2. AGENTS FOR HYPERLIPIDEMIAS (AGENTS FOR HYPERLIPIDEMIAS) [Concomitant]
  3. ANGIOTENSION II RECEPTOR BLOCKER (ANGIOTENSION II RECEPTOR BLOCKER) [Concomitant]
  4. CALCIUM ANTAGONIST (CALCIUM ANTAGONIST) [Concomitant]
  5. SERMION (NICERGOLINE) [Concomitant]

REACTIONS (1)
  - THROMBOCYTOPENIA [None]
